FAERS Safety Report 6677155-1 (Version None)
Quarter: 2010Q2

REPORT INFORMATION
  Report Type: 
  Country: None (occurrence: None)
  Receive Date: 20100412
  Receipt Date: 20100406
  Transmission Date: 20101027
  Serious: Yes (Death, Life-Threatening, Disabling)
  Sender: FDA-Public Use
  Company Number: US-MERCK-1002USA04084

PATIENT
  Sex: Male

DRUGS (1)
  1. SINGULAIR [Suspect]
     Route: 048

REACTIONS (1)
  - COMPLETED SUICIDE [None]
